FAERS Safety Report 13569635 (Version 1)
Quarter: 2017Q2

REPORT INFORMATION
  Report Type: Spontaneous
  Country: US (occurrence: US)
  Receive Date: 20170522
  Receipt Date: 20170522
  Transmission Date: 20170830
  Serious: No
  Sender: FDA-Public Use
  Company Number: US-INCYTE CORPORATION-2016IN006145

PATIENT

DRUGS (3)
  1. JAKAFI [Suspect]
     Active Substance: RUXOLITINIB
     Indication: POLYCYTHAEMIA VERA
     Dosage: 20 MG, BID
     Route: 048
     Dates: start: 20160708
  2. JAKAFI [Suspect]
     Active Substance: RUXOLITINIB
     Dosage: 20 MG TABLET DAILY ALTERNATING WITH TWO 20 MG TABLETS EVERY OTHER DAY
  3. JAKAFI [Suspect]
     Active Substance: RUXOLITINIB
     Dosage: 40 MG ALETERNATING WITH 20 MG BID
     Route: 048

REACTIONS (2)
  - Platelet count increased [Unknown]
  - Platelet count decreased [Unknown]

NARRATIVE: CASE EVENT DATE: 201607
